FAERS Safety Report 10898869 (Version 1)
Quarter: 2015Q1

REPORT INFORMATION
  Report Type: Spontaneous
  Country: KR (occurrence: KR)
  Receive Date: 20150309
  Receipt Date: 20150309
  Transmission Date: 20150721
  Serious: Yes (Death, Hospitalization)
  Sender: FDA-Public Use
  Company Number: KR-OTSUKA-US-2015-10965

PATIENT

DRUGS (84)
  1. DACOGEN [Suspect]
     Active Substance: DECITABINE
     Dosage: 20 MG/M2,1 IN
     Route: 042
     Dates: start: 20150126, end: 20150130
  2. SUCCINYLCHOLINE [Concomitant]
     Active Substance: SUCCINYLCHOLINE
     Indication: PREMEDICATION
     Dosage: 50 MG MILLIGRAM(S), 1 IN
     Route: 042
     Dates: start: 20150221, end: 20150221
  3. ACETYLCYSTEINE. [Concomitant]
     Active Substance: ACETYLCYSTEINE
     Dosage: 800 MG MILLIGRAM(S), 1 IN
     Route: 042
     Dates: start: 20150215, end: 20150215
  4. CHLORPHENAMINE MALEATE [Concomitant]
     Active Substance: CHLORPHENIRAMINE MALEATE
     Dosage: 4 MG MILLIGRAM(S), UNKNOWN, 1 IN
     Route: 042
     Dates: start: 20150220, end: 20150220
  5. LORAZEPAM. [Concomitant]
     Active Substance: LORAZEPAM
     Indication: SEDATION
     Dosage: 2 MG MILLIGRAM(S), UNKNOWN, 1 IN
     Route: 042
     Dates: start: 20150209, end: 20150209
  6. NOREPINEPHRINE BITARTRATE. [Concomitant]
     Active Substance: NOREPINEPHRINE BITARTRATE
     Indication: SHOCK
     Dosage: 32 MG MILLIGRAM(S), UNKNOWN, 1 IN
     Route: 042
     Dates: start: 20150209, end: 20150209
  7. PRANLUKAST [Concomitant]
     Active Substance: PRANLUKAST
     Indication: ASTHMA
     Dosage: 75 MG MILLIGRAM(S), UNKNOWN, 3 IN
     Route: 048
     Dates: end: 20150207
  8. PROPACETAMOL HYDROCHLORIDE [Concomitant]
     Active Substance: PROPACETAMOL HYDROCHLORIDE
     Indication: PYREXIA
     Dosage: 1 G GRAM(S), UNKNOWN, 1 IN
     Route: 042
     Dates: start: 20150208, end: 20150208
  9. ALBUMIN [Concomitant]
     Active Substance: ALBUMIN (HUMAN)
     Dosage: 250 ML MILLILITRE(S), 1 IN
     Route: 042
     Dates: start: 20150221, end: 20150221
  10. CANCIDAS [Concomitant]
     Active Substance: CASPOFUNGIN ACETATE
     Indication: CANDIDA INFECTION
     Dosage: 70 MG MILLIGRAM(S), 1 IN
     Route: 042
     Dates: start: 20150216, end: 20150222
  11. MOTILITONE [Concomitant]
     Active Substance: HERBALS
     Indication: GASTROINTESTINAL MOTILITY DISORDER
     Dosage: 30 MG MILLIGRAM(S), 3 IN
     Route: 048
     Dates: start: 20141230, end: 20150111
  12. ASPIRIN. [Concomitant]
     Active Substance: ASPIRIN
     Indication: ANGINA PECTORIS
     Dosage: 100 MG MILLIGRAM(S), UNKNOWN, 1 IN
     Route: 048
     Dates: start: 20150207
  13. CALCIUM CHLORIDE. [Concomitant]
     Active Substance: CALCIUM CHLORIDE
     Indication: HYPOCALCAEMIA
  14. CHLORPHENAMINE MALEATE [Concomitant]
     Active Substance: CHLORPHENIRAMINE MALEATE
     Dosage: 4 MG MILLIGRAM(S), UNKNOWN, 1 IN
     Route: 042
     Dates: start: 20150112, end: 20150112
  15. CHLORPHENAMINE MALEATE [Concomitant]
     Active Substance: CHLORPHENIRAMINE MALEATE
     Dosage: 4 MG MILLIGRAM(S), UNKNOWN, 1 IN
     Route: 042
     Dates: start: 20150208, end: 20150208
  16. CHLORPHENAMINE MALEATE [Concomitant]
     Active Substance: CHLORPHENIRAMINE MALEATE
     Dosage: 4 MG MILLIGRAM(S), UNKNOWN, 1 IN
     Route: 042
     Dates: start: 20150209, end: 20150209
  17. CHLORPHENAMINE MALEATE [Concomitant]
     Active Substance: CHLORPHENIRAMINE MALEATE
     Dosage: 4 MG MILLIGRAM(S), UNKNOWN, 1 IN
     Route: 042
     Dates: start: 20150210, end: 20150211
  18. DUPHALAC [Concomitant]
     Active Substance: LACTULOSE
     Indication: CONSTIPATION
     Dosage: 20 ML MILLILITRE(S), UNKNOWN, 3 IN
     Route: 048
     Dates: start: 20150101, end: 20150111
  19. ETOMIDATE. [Concomitant]
     Active Substance: ETOMIDATE
     Dosage: 10 MG MILLIGRAM(S), UNKNOWN, 1IN
     Route: 042
     Dates: start: 20150221, end: 20150221
  20. FLUTICASONE PROPIONATE. [Concomitant]
     Active Substance: FLUTICASONE PROPIONATE
     Indication: ASTHMA
     Dosage: 2 MG MILLIGRAM(S), UNKNOWN, 2 IN
     Route: 042
     Dates: start: 20141229, end: 20150102
  21. FUROSEMIDE. [Concomitant]
     Active Substance: FUROSEMIDE
     Dosage: 320 MG MILLIGRAM(S), UNK
     Dates: start: 20150222, end: 20150222
  22. LORAZEPAM. [Concomitant]
     Active Substance: LORAZEPAM
     Dosage: 2 MG MILLIGRAM(S), 1 IN
     Route: 042
     Dates: start: 20150221, end: 20150222
  23. PROPACETAMOL HYDROCHLORIDE [Concomitant]
     Active Substance: PROPACETAMOL HYDROCHLORIDE
     Dosage: 1 G GRAM(S), UNKNOWN, 2 IN
     Route: 042
     Dates: start: 20150209, end: 20150209
  24. BACTROBAN [Concomitant]
     Active Substance: MUPIROCIN\MUPIROCIN CALCIUM
     Indication: SKIN INFECTION
     Dosage: UNK, 1DOSE, 1 IN
     Route: 009
     Dates: start: 20150101, end: 20150101
  25. CRAVIT [Concomitant]
     Active Substance: LEVOFLOXACIN
     Indication: INFECTION
     Dosage: UNK, 1 DOSE, 1 IN
     Route: 048
     Dates: start: 20141230, end: 20150208
  26. DOXOFYLLINE [Concomitant]
     Active Substance: DOXOFYLLINE
     Dosage: 400 MG MILLIGRAM(S), 1 IN
     Route: 048
     Dates: start: 20150222, end: 20150222
  27. DEXAMETHASON [Concomitant]
     Active Substance: DEXAMETHASONE
     Indication: CANDIDA INFECTION
     Dosage: 10 MG MILLIGRAM(S), 1 IN
     Route: 042
     Dates: start: 20150211, end: 20150211
  28. CHLORPHENAMINE MALEATE [Concomitant]
     Active Substance: CHLORPHENIRAMINE MALEATE
     Dosage: 4 MG MILLIGRAM(S), UNKNOWN, 1 IN
     Route: 042
     Dates: start: 20150126, end: 20150126
  29. DIAZEPAM. [Concomitant]
     Active Substance: DIAZEPAM
     Dosage: 5 MG MILLIGRAM(S), UNKNOWN, 1 IN
     Route: 042
     Dates: start: 20150122, end: 20150122
  30. ETOMIDATE. [Concomitant]
     Active Substance: ETOMIDATE
     Dosage: 10 MG MILLIGRAM(S), UNKNOWN, 1IN
     Route: 042
     Dates: start: 20150214, end: 20150214
  31. FENTANYL. [Concomitant]
     Active Substance: FENTANYL
     Indication: PAIN MANAGEMENT
     Dosage: UNK, 12 UG/HR, 1 IN
     Route: 009
     Dates: start: 20150209, end: 20150209
  32. FUROSEMIDE. [Concomitant]
     Active Substance: FUROSEMIDE
     Dosage: 160 MG MILLIGRAM(S), UNK, 4 IN
     Dates: start: 20150221, end: 20150221
  33. SALBUTAMOL SULFATE [Concomitant]
     Active Substance: ALBUTEROL SULFATE
     Dosage: 2 ML MILLILITRE(S), UNKNOWN, 3 IN
     Route: 009
     Dates: start: 20150208
  34. CIMETIDINE [Concomitant]
     Active Substance: CIMETIDINE
     Indication: GASTRIC ULCER
     Dosage: 200 MG MILLIGRAM(S), UNKNOWN, 1 IN
     Route: 042
     Dates: start: 20150122, end: 20150122
  35. NOXAFIL [Concomitant]
     Active Substance: POSACONAZOLE
     Indication: FUNGAL INFECTION
     Dosage: 5 ML MILLILITRE(S), UNKNOWN, 3 IN
     Route: 048
     Dates: start: 20141230, end: 20150207
  36. GELMA [Concomitant]
     Indication: PROPHYLAXIS AGAINST GASTROINTESTINAL ULCER
     Dosage: 10 G GRAM(S), 3 IN
     Route: 048
     Dates: start: 20150213, end: 20150213
  37. K CONTIN [Concomitant]
     Indication: HYPOKALAEMIA
     Dosage: 2 DOSE(S), 3 IN
     Route: 048
     Dates: start: 20150213, end: 20150213
  38. ERDOSTEINE [Concomitant]
     Active Substance: ERDOSTEINE
     Indication: SPUTUM ABNORMAL
     Dosage: 300 MG MILLIGRAM(S), UNKNOWN, 3 IN
     Route: 048
     Dates: start: 20141230, end: 20150111
  39. ESOMEPRAZOLE [Concomitant]
     Active Substance: ESOMEPRAZOLE
     Indication: GASTRIC ULCER
     Dosage: 20 MG MILLIGRAM(S), UNKNOWN, 1 IN
     Route: 048
     Dates: start: 20150126, end: 20150201
  40. SALBUTAMOL SULFATE [Concomitant]
     Active Substance: ALBUTEROL SULFATE
     Indication: ASTHMA
     Dosage: 2 ML MILLILITRE(S), UNKNOWN, 3 IN
     Route: 009
     Dates: start: 20141229, end: 20141231
  41. SODIUM BICARBONATE. [Concomitant]
     Active Substance: SODIUM BICARBONATE
     Indication: ACIDOSIS
     Dosage: 10 ML MILLILITRE(S), UNKNOWN, 1 IN
     Route: 065
     Dates: start: 20150209, end: 20150209
  42. GRASIN [Concomitant]
     Indication: NEUTROPENIA
     Dosage: 300 MG MILLIGRAM(S), UNKNOWN, 1 IN
     Route: 042
     Dates: start: 20150208, end: 20150209
  43. FURIX [Concomitant]
     Active Substance: FUROSEMIDE
     Dosage: 40 MG MILLIGRAM(S), 4 IN
     Route: 048
     Dates: start: 20150222, end: 20150222
  44. TRIDOL [Concomitant]
     Indication: PAIN MANAGEMENT
     Dosage: 50 MG MILLIGRAM(S), 1 IN
     Route: 042
     Dates: start: 20150211, end: 20150212
  45. CHLORPHENAMINE MALEATE [Concomitant]
     Active Substance: CHLORPHENIRAMINE MALEATE
     Dosage: 4 MG MILLIGRAM(S), UNKNOWN, 1 IN
     Route: 042
     Dates: start: 20150215, end: 20150216
  46. DENISOLINE [Concomitant]
     Indication: ASTHMA
     Dosage: 40 MG MILLIGRAM(S), UNKNOWN, 1 IN
     Route: 042
     Dates: start: 20150209, end: 20150209
  47. IPRATROPIUM BROMIDE. [Concomitant]
     Active Substance: IPRATROPIUM BROMIDE
     Indication: ASTHMA
     Dosage: 2 ML MILLILITRE(S), UNKNOWN, 3 IN
     Route: 009
     Dates: start: 20141229, end: 20141231
  48. LORAZEPAM. [Concomitant]
     Active Substance: LORAZEPAM
     Dosage: 4 MG MILLIGRAM(S), UNKNOWN, 1IN
     Route: 042
     Dates: start: 20150209, end: 20150209
  49. SOL MEDROL [Concomitant]
     Indication: HORMONE THERAPY
     Dosage: 62.5 MG MILLIGRAM(S), UNKNOWN, 1 IN
     Route: 042
     Dates: start: 20150208, end: 20150208
  50. BISOLNASAL [Concomitant]
     Indication: MUCOUS MEMBRANE DISORDER
     Dosage: 8 MG MILLIGRAM(S), UNKNOWN, 3 IN
     Route: 048
     Dates: end: 20150207
  51. ALBUMIN [Concomitant]
     Active Substance: ALBUMIN (HUMAN)
     Dosage: 100 ML MILLILITRE(S), 1 IN
     Route: 042
     Dates: start: 20150220, end: 20150220
  52. DOXOFYLLINE [Concomitant]
     Active Substance: DOXOFYLLINE
     Indication: COUGH
     Dosage: 400 MG MILLIGRAM(S), 1 IN
     Route: 048
     Dates: start: 20150213, end: 20150220
  53. DUROGESIC [Concomitant]
     Active Substance: FENTANYL
     Indication: PAIN MANAGEMENT
     Dosage: 12 MG MILLIGRAM(S), 1 IN
     Route: 061
     Dates: start: 20150221, end: 20150221
  54. FURIX [Concomitant]
     Active Substance: FUROSEMIDE
     Indication: OEDEMA
     Dosage: 40 MG MILLIGRAM(S), 1 IN
     Route: 048
     Dates: start: 20150213, end: 20150220
  55. DACOGEN [Suspect]
     Active Substance: DECITABINE
     Indication: MYELODYSPLASTIC SYNDROME
     Dosage: 20 MG/M2, 1 IN
     Route: 042
     Dates: start: 20141229, end: 20150102
  56. ACETYLCYSTEINE. [Concomitant]
     Active Substance: ACETYLCYSTEINE
     Indication: PRODUCTIVE COUGH
     Dosage: 600 MG MILLIGRAM(S),  3 IN
     Route: 042
     Dates: start: 20150209, end: 20150221
  57. CALCIUM CHLORIDE. [Concomitant]
     Active Substance: CALCIUM CHLORIDE
     Indication: BALANCE DISORDER
     Dosage: 40 ML MILLILITRE(S), UNKNOWN, 1 IN
     Route: 042
     Dates: start: 20150209
  58. CHLORPHENAMINE MALEATE [Concomitant]
     Active Substance: CHLORPHENIRAMINE MALEATE
     Indication: PREMEDICATION
     Dosage: 4 MG MILLIGRAM(S), UNKNOWN, 1 IN
     Route: 042
     Dates: start: 20150102, end: 20150102
  59. CLOPIDOGREL [Concomitant]
     Active Substance: CLOPIDOGREL BISULFATE
     Indication: ANGINA PECTORIS
     Dosage: 75 MG MILLIGRAM(S), UNKNOWN, 1 IN
     Route: 048
     Dates: end: 20150207
  60. ETOMIDATE. [Concomitant]
     Active Substance: ETOMIDATE
     Indication: SEDATION
     Dosage: 10 MG MILLIGRAM(S), UNKNOWN, 1IN
     Route: 042
     Dates: start: 20150209, end: 20150209
  61. MAGNESIUM HYDROXIDE. [Concomitant]
     Active Substance: MAGNESIUM HYDROXIDE
     Indication: CONSTIPATION
     Dosage: 500 MG MILLIGRAM(S), UNKNOWN, 1 IN
     Route: 048
     Dates: start: 20150101, end: 20150111
  62. MEGESTROL ACETATE. [Concomitant]
     Active Substance: MEGESTROL ACETATE
     Indication: DECREASED APPETITE
     Dosage: 20 ML MILLILITRE(S), UNKNOWN, 1 IN
     Route: 048
     Dates: start: 20141229, end: 20150122
  63. AVELOX [Concomitant]
     Active Substance: MOXIFLOXACIN HYDROCHLORIDE
     Indication: INFECTION
     Dosage: UNK, 1 DOSE, 1 IN
     Route: 048
     Dates: start: 20150126, end: 20150201
  64. ALBUMIN [Concomitant]
     Active Substance: ALBUMIN (HUMAN)
     Dosage: 100 ML MILLILITRE(S), 1 IN
     Route: 042
     Dates: start: 20150215, end: 20150215
  65. ALDACTONE [Concomitant]
     Active Substance: SPIRONOLACTONE
     Indication: OEDEMA
     Dosage: 25 MG MILLIGRAM(S), 1 IN
     Route: 048
     Dates: start: 20150212, end: 20150218
  66. LANSTON [Concomitant]
     Active Substance: LANSOPRAZOLE
     Indication: PROPHYLAXIS AGAINST GASTROINTESTINAL ULCER
     Dosage: 15 MG MILLIGRAM(S), 1 IN
     Route: 048
     Dates: start: 20150220, end: 20150220
  67. BUDESONIDE W/FORMOTEROL FUMARATE [Concomitant]
     Active Substance: BUDESONIDE\FORMOTEROL FUMARATE
     Indication: ASTHMA
     Dosage: UNK, 1 DOSE, 1 IN
     Route: 009
  68. CHLORHEXIDINE GLUCONATE. [Concomitant]
     Active Substance: CHLORHEXIDINE GLUCONATE
     Indication: DENTAL DISORDER PROPHYLAXIS
     Dosage: 100 ML MILLILITRE(S), UNKNOWN, 1 IN
     Route: 009
     Dates: start: 20150209, end: 20150209
  69. DIAZEPAM. [Concomitant]
     Active Substance: DIAZEPAM
     Indication: VERTIGO
     Dosage: 3 MG MILLIGRAM(S), UNKNOWN, 1 IN
     Route: 042
     Dates: start: 20150122, end: 20150122
  70. IPRATROPIUM BROMIDE. [Concomitant]
     Active Substance: IPRATROPIUM BROMIDE
     Dosage: 2 ML MILLILITRE(S), UNKNOWN
     Route: 009
     Dates: start: 20150208
  71. VITAMIN K1 [Concomitant]
     Active Substance: PHYTONADIONE
     Indication: HAEMORRHAGE PROPHYLAXIS
     Dosage: 10 MG MILLIGRAM(S), UNKNOWN, 1 IN
     Route: 042
     Dates: start: 20150208, end: 20150208
  72. CRAVIT [Concomitant]
     Active Substance: LEVOFLOXACIN
     Dosage: UNK, 1 DOSE, 1 IN
     Route: 048
     Dates: start: 20150208, end: 20150208
  73. ALBUMIN [Concomitant]
     Active Substance: ALBUMIN (HUMAN)
     Indication: DIURETIC THERAPY
     Dosage: 100 ML MILLILITRE(S), 1 IN
     Route: 042
     Dates: start: 20150211, end: 20150211
  74. BOTROPASE [Concomitant]
     Indication: HAEMORRHAGE PROPHYLAXIS
     Dosage: 2 ML MILLILITRE(S), 1 IN
     Route: 042
     Dates: start: 20150213, end: 20150213
  75. DIMENHYDRINATE. [Concomitant]
     Active Substance: DIMENHYDRINATE
     Indication: VERTIGO
     Dosage: 50 MG MILLIGRAM(S), UNKNOWN, 1 IN
     Route: 048
     Dates: start: 20150122, end: 20150124
  76. FUROSEMIDE. [Concomitant]
     Active Substance: FUROSEMIDE
     Indication: OEDEMA
     Dosage: 20 MG MILLIGRAM(S), UNKNOWN, 1 IN
     Route: 042
     Dates: start: 20150208, end: 20150221
  77. FUROSEMIDE. [Concomitant]
     Active Substance: FUROSEMIDE
     Dosage: 40 MG MILLIGRAM(S), UNKNOWN, 4 IN
     Route: 042
     Dates: start: 20150221
  78. FAMOTIDINE. [Concomitant]
     Active Substance: FAMOTIDINE
     Indication: GASTRIC ULCER
     Dosage: 20 MG MILLIGRAM(S), UNKNOWN, 2 IN
     Route: 042
     Dates: start: 20150209
  79. MOTILITONE [Concomitant]
     Active Substance: HERBALS
     Indication: GASTROINTESTINAL MOTILITY DISORDER
     Dosage: 30 MG MILLIGRAM(S), UNKNOWN, 3 IN
     Route: 048
     Dates: start: 20140130, end: 20150111
  80. VASTINAN [Concomitant]
     Indication: VERTIGO
     Dosage: 35 MG MILLIGRAM(S), UNKNOWN, 3 IN
     Route: 048
     Dates: start: 20150122, end: 20150124
  81. ALBUMIN [Concomitant]
     Active Substance: ALBUMIN (HUMAN)
     Dosage: 100 ML MILLILITRE(S), 1 IN
     Route: 042
     Dates: start: 20150213, end: 20150213
  82. ALBUMIN [Concomitant]
     Active Substance: ALBUMIN (HUMAN)
     Dosage: 100 ML MILLILITRE(S), 1 IN
     Route: 042
     Dates: start: 20150217, end: 20150217
  83. ALMAGEL [Concomitant]
     Indication: PROPHYLAXIS AGAINST GASTROINTESTINAL ULCER
     Dosage: 15 ML MILLILITRE(S), 3 IN
     Route: 048
     Dates: start: 20150212, end: 20150218
  84. K CONTIN [Concomitant]
     Dosage: 2 DOSE(S), 3 IN
     Route: 048
     Dates: start: 20150218, end: 20150218

REACTIONS (1)
  - Pneumonia [Fatal]

NARRATIVE: CASE EVENT DATE: 20150207
